FAERS Safety Report 8436144-7 (Version None)
Quarter: 2012Q2

REPORT INFORMATION
  Report Type: 
  Country: None (occurrence: None)
  Receive Date: 20120614
  Receipt Date: 20120611
  Transmission Date: 20120825
  Serious: No
  Sender: FDA-Public Use
  Company Number: US-TEVA-342859USA

PATIENT
  Sex: Female
  Weight: 68.1 kg

DRUGS (7)
  1. PLAN B ONE-STEP [Suspect]
     Indication: POST COITAL CONTRACEPTION
     Dosage: 1.5 MILLIGRAM;
     Route: 048
     Dates: start: 20120606, end: 20120606
  2. KLONOPIN [Concomitant]
     Indication: DEPRESSION
  3. ADDERALL 5 [Concomitant]
     Indication: DEPRESSION
  4. KLONOPIN [Concomitant]
     Indication: ANXIETY
  5. PROZAC [Concomitant]
     Indication: DEPRESSION
     Route: 048
  6. PROZAC [Concomitant]
     Indication: ANXIETY
  7. ADDERALL 5 [Concomitant]
     Indication: ANXIETY

REACTIONS (3)
  - ABDOMINAL DISTENSION [None]
  - MENSTRUATION IRREGULAR [None]
  - ABDOMINAL PAIN [None]
